FAERS Safety Report 5196233-X (Version None)
Quarter: 2007Q1

REPORT INFORMATION
  Report Type: 
  Country: None (occurrence: None)
  Receive Date: 20070102
  Receipt Date: 20061227
  Transmission Date: 20070707
  Serious: Yes (Hospitalization)
  Sender: FDA-Public Use
  Company Number: JP-BOEHRINGER INGELHEIM PHARMACEUTICALS, INC.-2006-BP-15148NB

PATIENT
  Age: 1 Year
  Sex: Female

DRUGS (1)
  1. CATAPRES [Suspect]
     Route: 048
     Dates: start: 20061225, end: 20061225

REACTIONS (3)
  - ACCIDENTAL DRUG INTAKE BY CHILD [None]
  - DIZZINESS [None]
  - DRUG ABUSER [None]
